FAERS Safety Report 21016891 (Version 1)
Quarter: 2022Q2

REPORT INFORMATION
  Report Type: Report from Study
  Country: GR (occurrence: GR)
  Receive Date: 20220628
  Receipt Date: 20220628
  Transmission Date: 20220721
  Serious: Yes (Hospitalization)
  Sender: FDA-Public Use
  Company Number: GR-ABBVIE-22K-066-4447486-00

PATIENT
  Age: 77 Year
  Sex: Female
  Weight: 90 kg

DRUGS (2)
  1. CARBIDOPA\LEVODOPA [Suspect]
     Active Substance: CARBIDOPA\LEVODOPA
     Indication: Parkinson^s disease
     Dosage: MORNING DOSE: 9.7ML; CONTINUOUS RATE: 3.6ML/H; EXTRA DOSE: 1.7ML
     Route: 050
     Dates: start: 20180417
  2. CARBIDOPA\LEVODOPA [Suspect]
     Active Substance: CARBIDOPA\LEVODOPA
     Dosage: MORNING DOSE: 9.7ML; CONTINUOUS RATE: 3.6ML/H; EXTRA DOSE: 1.7ML
     Route: 050

REACTIONS (1)
  - Nephrolithiasis [Recovering/Resolving]

NARRATIVE: CASE EVENT DATE: 20220604
